FAERS Safety Report 7200764-8 (Version None)
Quarter: 2010Q4

REPORT INFORMATION
  Report Type: 
  Country: None (occurrence: None)
  Receive Date: 20101228
  Receipt Date: 20101222
  Transmission Date: 20110411
  Serious: Yes (Other)
  Sender: FDA-Public Use
  Company Number: IT-PFIZER INC-2010179424

PATIENT
  Sex: Male

DRUGS (1)
  1. REFACTO [Suspect]

REACTIONS (1)
  - DRUG INEFFECTIVE [None]
